FAERS Safety Report 9654714 (Version 2)
Quarter: 2013Q4

REPORT INFORMATION
  Report Type: Spontaneous
  Country: ES (occurrence: None)
  Receive Date: 20131017
  Receipt Date: 20131031
  Transmission Date: 20140711
  Serious: Yes (Death)
  Sender: FDA-Public Use
  Company Number: 2013038359

PATIENT
  Age: 7 Month
  Sex: Male

DRUGS (11)
  1. PRIVIGEN [Suspect]
     Indication: COMBINED IMMUNODEFICIENCY
     Dosage: 40MG/KG WEEKLY OR EVERY 2 WEEKS
     Route: 042
     Dates: start: 20110824, end: 20120105
  2. ACYCLOVIR (ACICLOVIR) [Concomitant]
  3. OTHER ANTIMYCOTICS FOR SYSTEMIC USE (OTHER ANTIMYCOTICS FOR SYSTEMIC USE) [Concomitant]
  4. MEROPENEM (MEROPENEM) [Concomitant]
  5. OMEPRAZOLE (OMEPRAZOLE) [Concomitant]
  6. FUROSEMIDE (FUROSEMIDE) [Concomitant]
  7. METHYLPREDNISOLONE (METHYLPREDNISOLONE) [Concomitant]
  8. ATG (ANTITHYMOCYTE IMMUNOGLOBULIN) [Concomitant]
  9. BUSULFAN (BUSULFAN) [Concomitant]
  10. DOMPERIDONE (DOMPERIDONE) [Concomitant]
  11. LEVETIRACETAM (LEVETIRACETAM) [Concomitant]

REACTIONS (1)
  - Death [None]
